FAERS Safety Report 4875789-8 (Version None)
Quarter: 2006Q1

REPORT INFORMATION
  Report Type: 
  Country: None (occurrence: None)
  Receive Date: 20060104
  Receipt Date: 20051221
  Transmission Date: 20060701
  Serious: Yes (Hospitalization, Other)
  Sender: FDA-Public Use
  Company Number: FR-2005-028038

PATIENT
  Age: 49 Year
  Sex: Male

DRUGS (8)
  1. SOTALOL HCL [Suspect]
     Dosage: TAB(S), 1X/DAY, ORAL
     Route: 048
  2. PREVISCAN          (FLUINDIONE) [Suspect]
     Dosage: 0.25 1X/DAY
  3. NEURONTIN [Suspect]
     Dosage: 1.2 G, 1X/DAY; SEE IMAGE
  4. EPIVIR [Suspect]
     Indication: HIV INFECTION
     Dosage: 4, 1X/DAY; SEE IMAGE
     Dates: start: 19970929
  5. VIRACEPT [Suspect]
     Indication: HIV INFECTION
     Dosage: 10, 1X/DAY
     Dates: start: 19981130
  6. ZIAGEN [Suspect]
     Indication: HIV INFECTION
     Dosage: 4, 1X/DAY; SEE IMAGE
     Dates: start: 19970929
  7. CITALOPRAM HYDROBROMIDE [Concomitant]
  8. CLONAZEPAM [Concomitant]

REACTIONS (3)
  - ACUTE CORONARY SYNDROME [None]
  - ANGINA UNSTABLE [None]
  - CORONARY ARTERY STENOSIS [None]
